FAERS Safety Report 10242867 (Version 2)
Quarter: 2014Q3

REPORT INFORMATION
  Report Type: Spontaneous
  Country: GB (occurrence: GB)
  Receive Date: 20140618
  Receipt Date: 20140708
  Transmission Date: 20150326
  Serious: Yes (Other)
  Sender: FDA-Public Use
  Company Number: GB-ACCORD-024249

PATIENT
  Age: 46 Year
  Sex: Female

DRUGS (4)
  1. CITALOPRAM [Suspect]
     Active Substance: CITALOPRAM HYDROBROMIDE
     Indication: PRODUCT USED FOR UNKNOWN INDICATION
     Route: 048
  2. CLOBAZAM [Concomitant]
     Active Substance: CLOBAZAM
  3. QUETIAPINE [Suspect]
     Active Substance: QUETIAPINE
     Indication: DEPRESSION
     Route: 048
  4. EPILIM [Concomitant]
     Active Substance: VALPROATE SODIUM

REACTIONS (1)
  - Epilepsy [Not Recovered/Not Resolved]
